FAERS Safety Report 21393058 (Version 1)
Quarter: 2022Q3

REPORT INFORMATION
  Report Type: Report from Study
  Country: DE (occurrence: DE)
  Receive Date: 20220929
  Receipt Date: 20220929
  Transmission Date: 20221027
  Serious: Yes (Hospitalization)
  Sender: FDA-Public Use
  Company Number: DE-NOVARTISPH-NVSC2022DE219955

PATIENT
  Sex: Male
  Weight: 116 kg

DRUGS (13)
  1. COSENTYX [Suspect]
     Active Substance: SECUKINUMAB
     Indication: Axial spondyloarthritis
     Dosage: 150 MG (ONCE)
     Route: 065
     Dates: start: 20220531, end: 20220531
  2. COSENTYX [Suspect]
     Active Substance: SECUKINUMAB
     Dosage: 150 MG  (ONCE)
     Route: 065
     Dates: start: 20220607, end: 20220607
  3. COSENTYX [Suspect]
     Active Substance: SECUKINUMAB
     Dosage: 150 MG  (ONCE)
     Route: 065
     Dates: start: 20220614, end: 20220614
  4. COSENTYX [Suspect]
     Active Substance: SECUKINUMAB
     Dosage: 150 MG  (ONCE)
     Route: 065
     Dates: start: 20220621, end: 20220621
  5. COSENTYX [Suspect]
     Active Substance: SECUKINUMAB
     Dosage: 150 MG  (ONCE)
     Route: 065
     Dates: start: 20220628, end: 20220628
  6. COSENTYX [Suspect]
     Active Substance: SECUKINUMAB
     Dosage: 150 MG  (ONCE)
     Route: 065
     Dates: start: 20220728, end: 20220728
  7. METHOTREXATE [Concomitant]
     Active Substance: METHOTREXATE
     Indication: Axial spondyloarthritis
     Dosage: 15 MG, QW
     Route: 058
     Dates: start: 20220302
  8. FOLIC ACID [Concomitant]
     Active Substance: FOLIC ACID
     Indication: Axial spondyloarthritis
     Dosage: 5 MG, QW
     Route: 048
     Dates: start: 20220321
  9. METOPROLOL SUCCINATE [Concomitant]
     Active Substance: METOPROLOL SUCCINATE
     Indication: Hypertension
     Dosage: 95 MG, BID (ONCE IN THE MORNING, ONCE IN THE EVENING (1-0-1)
     Route: 048
  10. RAMIPRIL [Concomitant]
     Active Substance: RAMIPRIL
     Indication: Hypertension
     Dosage: 5 MG, BID (ONCE IN THE MORNING, ONCE IN THE EVENING (1-0-1)
     Route: 048
     Dates: start: 202107
  11. ASPIRIN [Concomitant]
     Active Substance: ASPIRIN
     Indication: Coronary artery disease
     Dosage: 100 MG, QD (ONCE IN THE MORNING (1-0-0)
     Route: 048
     Dates: start: 202107
  12. METFORMIN [Concomitant]
     Active Substance: METFORMIN HYDROCHLORIDE
     Indication: Type 2 diabetes mellitus
     Dosage: 0.5 DOSAGE FORM, BID (100 MG) ONE HALF IN THE MORNING, ONE HALF IN THE EVENING (1/2-0-1/2)
     Route: 048
  13. CERTOPARIN SODIUM [Concomitant]
     Active Substance: CERTOPARIN SODIUM
     Indication: Thrombosis prophylaxis
     Dosage: 0.3 MG (ONCE RECEIVED)
     Route: 058
     Dates: start: 20220808, end: 20220808

REACTIONS (1)
  - Anal abscess [Recovering/Resolving]

NARRATIVE: CASE EVENT DATE: 20220801
